FAERS Safety Report 23260414 (Version 1)
Quarter: 2023Q4

REPORT INFORMATION
  Report Type: Report from Study
  Country: US (occurrence: US)
  Receive Date: 20231205
  Receipt Date: 20231205
  Transmission Date: 20240110
  Serious: Yes (Hospitalization, Other)
  Sender: FDA-Public Use
  Company Number: US-ABBVIE-5520252

PATIENT
  Sex: Female

DRUGS (1)
  1. HUMIRA [Suspect]
     Active Substance: ADALIMUMAB
     Indication: Crohn^s disease
     Route: 058
     Dates: start: 2016, end: 2018

REACTIONS (4)
  - Pericardial effusion [Recovered/Resolved]
  - Autoimmune disorder [Recovered/Resolved]
  - Pleural effusion [Recovered/Resolved]
  - Illness [Unknown]
